FAERS Safety Report 18281198 (Version 2)
Quarter: 2022Q1

REPORT INFORMATION
  Report Type: Spontaneous
  Country: CA (occurrence: CA)
  Receive Date: 20200918
  Receipt Date: 20220121
  Transmission Date: 20220423
  Serious: Yes (Other)
  Sender: FDA-Public Use
  Company Number: CA-ALVOGEN-2020-ALVOGEN-114336

PATIENT
  Sex: Female

DRUGS (4)
  1. LISINOPRIL [Suspect]
     Active Substance: LISINOPRIL
     Indication: Product used for unknown indication
     Route: 048
  2. GILOTRIF [Suspect]
     Active Substance: AFATINIB
     Indication: Lung cancer metastatic
     Route: 048
     Dates: start: 20190920
  3. SUCRALFATE [Suspect]
     Active Substance: SUCRALFATE
     Indication: Gastritis
     Route: 065
  4. ELIQUIS [Concomitant]
     Active Substance: APIXABAN
     Indication: Anticoagulant therapy
     Route: 065

REACTIONS (22)
  - Alopecia [Not Recovered/Not Resolved]
  - Diarrhoea [Recovered/Resolved]
  - Dry mouth [Recovering/Resolving]
  - Dry skin [Not Recovered/Not Resolved]
  - Dyspepsia [Not Recovered/Not Resolved]
  - Gastritis [Not Recovered/Not Resolved]
  - Chapped lips [Not Recovered/Not Resolved]
  - Glossodynia [Not Recovered/Not Resolved]
  - Hair growth abnormal [Unknown]
  - Heart rate increased [Not Recovered/Not Resolved]
  - Ill-defined disorder [Not Recovered/Not Resolved]
  - Muscle spasms [Unknown]
  - Nasal discomfort [Unknown]
  - Oral mucosal blistering [Recovering/Resolving]
  - Pain in extremity [Not Recovered/Not Resolved]
  - Scab [Not Recovered/Not Resolved]
  - Swelling [Recovered/Resolved]
  - Nausea [Unknown]
  - Gastrointestinal infection [Recovered/Resolved]
  - Illness [Unknown]
  - Hair growth abnormal [Not Recovered/Not Resolved]
  - Precancerous cells present [Not Recovered/Not Resolved]
